FAERS Safety Report 8426647-3 (Version None)
Quarter: 2012Q2

REPORT INFORMATION
  Report Type: 
  Country: None (occurrence: None)
  Receive Date: 20120611
  Receipt Date: 20120606
  Transmission Date: 20120825
  Serious: Yes (Other)
  Sender: FDA-Public Use
  Company Number: BR-PFIZER INC-2012136280

PATIENT
  Sex: Female

DRUGS (2)
  1. COSOPT [Concomitant]
     Dosage: UNK
  2. XALATAN [Suspect]
     Dosage: UNK
     Route: 047
     Dates: start: 19980101, end: 20060101

REACTIONS (3)
  - GLAUCOMA [None]
  - VISUAL ACUITY REDUCED [None]
  - CATARACT [None]
